FAERS Safety Report 20027624 (Version 2)
Quarter: 2021Q4

REPORT INFORMATION
  Report Type: Spontaneous
  Country: FR (occurrence: FR)
  Receive Date: 20211103
  Receipt Date: 20211115
  Transmission Date: 20220303
  Serious: Yes (Life-Threatening, Other)
  Sender: FDA-Public Use
  Company Number: FR-AFSSAPS-PV20212993

PATIENT
  Age: 57 Year
  Sex: Female
  Weight: 60 kg

DRUGS (7)
  1. ESCITALOPRAM [Interacting]
     Active Substance: ESCITALOPRAM OXALATE
     Indication: Mixed anxiety and depressive disorder
     Dosage: 20 MILLIGRAM, ONCE A DAY
     Route: 048
     Dates: start: 20210909, end: 20210913
  2. ESCITALOPRAM [Interacting]
     Active Substance: ESCITALOPRAM OXALATE
     Dosage: 10 MILLIGRAM, ONCE A DAY
     Route: 048
     Dates: end: 20210911
  3. ERYTHROMYCIN [Interacting]
     Active Substance: ERYTHROMYCIN
     Indication: Subileus
     Dosage: 500 MILLIGRAM, TWO TIMES A DAY
     Route: 042
     Dates: start: 20210907, end: 20210911
  4. ERYTHROMYCIN [Interacting]
     Active Substance: ERYTHROMYCIN
     Dosage: UNK (DOSAGE NOT SPECIFIED)
     Route: 042
     Dates: start: 20210909, end: 20210911
  5. PRIMPERAN [Interacting]
     Active Substance: METOCLOPRAMIDE HYDROCHLORIDE
     Indication: Subileus
     Dosage: 10 MILLIGRAM, 3 TIMES A DAY
     Route: 042
     Dates: start: 20210907, end: 20210911
  6. PRIMPERAN [Interacting]
     Active Substance: METOCLOPRAMIDE HYDROCHLORIDE
     Dosage: UNK (DOSAGE NOT SPECIFIED)
     Route: 042
     Dates: start: 20210909, end: 20210911
  7. COLCHICINE [Concomitant]
     Active Substance: COLCHICINE
     Indication: Product used for unknown indication
     Dosage: UNK
     Route: 065

REACTIONS (4)
  - Electrocardiogram QT prolonged [Recovered/Resolved]
  - Sinus arrest [Recovered/Resolved]
  - Drug interaction [Recovered/Resolved]
  - Labelled drug-drug interaction medication error [Recovered/Resolved]

NARRATIVE: CASE EVENT DATE: 20210907
